FAERS Safety Report 9693261 (Version 1)
Quarter: 2013Q4

REPORT INFORMATION
  Report Type: Spontaneous
  Country: US (occurrence: None)
  Receive Date: 20131115
  Receipt Date: 20131115
  Transmission Date: 20140711
  Serious: Yes (Other)
  Sender: FDA-Public Use
  Company Number: None

PATIENT
  Age: 67 Year
  Sex: Male

DRUGS (1)
  1. AUGMENTIN [Suspect]
     Dates: start: 20110709, end: 20110719

REACTIONS (4)
  - Drug-induced liver injury [None]
  - Hepatic steatosis [None]
  - Splenomegaly [None]
  - Renal cyst [None]
